FAERS Safety Report 6062849-1 (Version None)
Quarter: 2009Q1

REPORT INFORMATION
  Report Type: 
  Country: None (occurrence: None)
  Receive Date: 20090202
  Receipt Date: 20090202
  Transmission Date: 20090719
  Serious: Yes (Hospitalization)
  Sender: FDA-Public Use
  Company Number: None

PATIENT
  Age: 43 Year
  Sex: Female

DRUGS (2)
  1. PROMETHAZINE [Suspect]
     Indication: NAUSEA
     Dosage: 12.5MG STAT IV BOLUS
     Route: 040
     Dates: start: 20090128, end: 20090128
  2. PROMETHAZINE [Suspect]
     Indication: VOMITING
     Dosage: 12.5MG STAT IV BOLUS
     Route: 040
     Dates: start: 20090128, end: 20090128

REACTIONS (3)
  - AKATHISIA [None]
  - DYSKINESIA [None]
  - EXTRAPYRAMIDAL DISORDER [None]
